FAERS Safety Report 7349498-X (Version None)
Quarter: 2011Q1

REPORT INFORMATION
  Report Type: 
  Country: None (occurrence: None)
  Receive Date: 20110314
  Receipt Date: 20110223
  Transmission Date: 20110831
  Serious: No
  Sender: FDA-Public Use
  Company Number: US-ABBOTT-11P-163-0707637-00

PATIENT
  Sex: Female
  Weight: 86.26 kg

DRUGS (7)
  1. DEPAKOTE [Suspect]
     Indication: HYPOAESTHESIA
  2. FLEXERIL [Concomitant]
     Indication: PRODUCT USED FOR UNKNOWN INDICATION
  3. DEPAKOTE [Suspect]
     Indication: TREMOR
     Dates: start: 20080101, end: 20080101
  4. DILAUDID [Concomitant]
     Indication: PRODUCT USED FOR UNKNOWN INDICATION
  5. DEPAKOTE [Suspect]
     Indication: HEADACHE
  6. VALIUM [Concomitant]
     Indication: PRODUCT USED FOR UNKNOWN INDICATION
  7. DEPAKOTE [Suspect]
     Indication: PARAESTHESIA

REACTIONS (2)
  - AMNESIA [None]
  - DRUG INEFFECTIVE [None]
